FAERS Safety Report 5971679-8 (Version None)
Quarter: 2008Q4

REPORT INFORMATION
  Report Type: 
  Country: None (occurrence: None)
  Receive Date: 20081201
  Receipt Date: 20081114
  Transmission Date: 20090506
  Serious: Yes (Other)
  Sender: FDA-Public Use
  Company Number: GB-SANOFI-SYNTHELABO-A01200814733

PATIENT
  Age: 40 Year
  Sex: Female

DRUGS (4)
  1. DEXAMETHASONE [Concomitant]
     Indication: PREMEDICATION
  2. METOCLOPRAMIDE [Concomitant]
     Indication: PREMEDICATION
  3. ONDANSETRON [Concomitant]
     Indication: PREMEDICATION
  4. ELOXATIN [Suspect]
     Indication: COLORECTAL CANCER
     Dosage: UNK
     Route: 041

REACTIONS (2)
  - ALVEOLITIS [None]
  - DYSPNOEA [None]
